FAERS Safety Report 6697650-9 (Version None)
Quarter: 2010Q2

REPORT INFORMATION
  Report Type: 
  Country: None (occurrence: None)
  Receive Date: 20100426
  Receipt Date: 20100416
  Transmission Date: 20101027
  Serious: Yes (Hospitalization, Other)
  Sender: FDA-Public Use
  Company Number: US-ABBOTT-10P-163-0639272-00

PATIENT
  Sex: Female
  Weight: 88.984 kg

DRUGS (27)
  1. HUMIRA [Suspect]
     Indication: JUVENILE ARTHRITIS
     Dates: start: 20060101, end: 20090101
  2. HUMIRA [Suspect]
     Indication: PSORIATIC ARTHROPATHY
     Dates: start: 20090101
  3. TORSEMIDE [Concomitant]
     Indication: DRUG USE FOR UNKNOWN INDICATION
  4. POTASSIUM CHLORIDE ER [Concomitant]
     Indication: MINERAL SUPPLEMENTATION
  5. CARVEDILOL [Concomitant]
     Indication: DRUG USE FOR UNKNOWN INDICATION
  6. SYNTHROID [Concomitant]
     Indication: HYPOTHYROIDISM
  7. LEFLUNOMIDE [Concomitant]
     Indication: DRUG USE FOR UNKNOWN INDICATION
  8. PROTONIX [Concomitant]
     Indication: DRUG USE FOR UNKNOWN INDICATION
  9. SINGULAIR [Concomitant]
     Indication: ASTHMA
  10. MECLIZINE [Concomitant]
     Indication: DRUG USE FOR UNKNOWN INDICATION
  11. PROMETHAZINE [Concomitant]
     Indication: NAUSEA
     Route: 054
  12. VENTOLIN DS [Concomitant]
     Indication: ASTHMA
  13. ASPIRIN [Concomitant]
     Indication: DRUG USE FOR UNKNOWN INDICATION
  14. NITROLINGUAL PUMPSPRAY [Concomitant]
     Indication: CHEST PAIN
     Route: 060
  15. OXYCONTIN [Concomitant]
     Indication: PAIN
  16. BACLOFEN [Concomitant]
     Indication: DRUG USE FOR UNKNOWN INDICATION
  17. INDOCET [Concomitant]
     Indication: DRUG USE FOR UNKNOWN INDICATION
  18. LORAZEPAM [Concomitant]
     Indication: DRUG USE FOR UNKNOWN INDICATION
  19. B12-VITAMIN [Concomitant]
     Indication: VITAMIN SUPPLEMENTATION
     Route: 048
  20. LOVAZA [Concomitant]
     Indication: SUPPLEMENTATION THERAPY
  21. AZMANEX [Concomitant]
     Indication: DRUG USE FOR UNKNOWN INDICATION
  22. NIASPAN [Concomitant]
     Indication: DRUG USE FOR UNKNOWN INDICATION
  23. CLONIDINE [Concomitant]
     Indication: DRUG USE FOR UNKNOWN INDICATION
  24. CETIRIZINE HCL [Concomitant]
     Indication: DRUG USE FOR UNKNOWN INDICATION
  25. FLUTACAZONE [Concomitant]
     Indication: DRUG USE FOR UNKNOWN INDICATION
     Route: 045
  26. CAPTOPRIL [Concomitant]
     Indication: DRUG USE FOR UNKNOWN INDICATION
  27. ZOCOR [Concomitant]
     Indication: DRUG USE FOR UNKNOWN INDICATION

REACTIONS (6)
  - ARTERIAL STENT INSERTION [None]
  - COUGH [None]
  - HYPOTENSION [None]
  - LUNG INFECTION [None]
  - MUSCULAR WEAKNESS [None]
  - WHEEZING [None]
